FAERS Safety Report 9849423 (Version 1)
Quarter: 2014Q1

REPORT INFORMATION
  Report Type: Spontaneous
  Country: IN (occurrence: None)
  Receive Date: 20140124
  Receipt Date: 20140124
  Transmission Date: 20141002
  Serious: Yes (Other)
  Sender: FDA-Public Use
  Company Number: 2014HINLIT0007

PATIENT
  Age: 33 Year
  Sex: Male

DRUGS (2)
  1. LITHIUM (LITHIUM) UNKNOWN [Suspect]
     Indication: PRODUCT USED FOR UNKNOWN INDICATION
     Route: 048
  2. VALPROATE (VALPROATE) [Concomitant]

REACTIONS (5)
  - Neurotoxicity [None]
  - Toxicity to various agents [None]
  - Tremor [None]
  - Muscle rigidity [None]
  - Confusional state [None]
